FAERS Safety Report 6015400-6 (Version None)
Quarter: 2008Q4

REPORT INFORMATION
  Report Type: 
  Country: None (occurrence: None)
  Receive Date: 20081222
  Receipt Date: 20081210
  Transmission Date: 20090506
  Serious: Yes (Other)
  Sender: FDA-Public Use
  Company Number: US-BIOGENIDEC-2008BI022749

PATIENT
  Age: 49 Year
  Sex: Female

DRUGS (3)
  1. TYSABRI [Suspect]
     Indication: MULTIPLE SCLEROSIS
     Route: 042
     Dates: start: 20080618
  2. AMBIEN [Concomitant]
     Indication: SLEEP DISORDER
  3. VALIUM [Concomitant]
     Indication: SLEEP DISORDER

REACTIONS (9)
  - BURNING SENSATION [None]
  - CONVULSION [None]
  - DEPRESSION [None]
  - DYSARTHRIA [None]
  - MULTIPLE SCLEROSIS RELAPSE [None]
  - NOCTURIA [None]
  - RESIDUAL URINE [None]
  - SKIN BURNING SENSATION [None]
  - SLEEP DISORDER [None]
